FAERS Safety Report 22087043 (Version 1)
Quarter: 2023Q1

REPORT INFORMATION
  Report Type: Spontaneous
  Country: US (occurrence: US)
  Receive Date: 20230313
  Receipt Date: 20230313
  Transmission Date: 20230418
  Serious: No
  Sender: FDA-Public Use
  Company Number: US-BAUSCHBL-2023BNL001874

PATIENT
  Age: 61 Year
  Sex: Female
  Weight: 76.726 kg

DRUGS (2)
  1. MURO 128 [Suspect]
     Active Substance: SODIUM CHLORIDE
     Indication: Corneal oedema
     Dosage: TWO TO THREE TIMES WEEKLY
     Route: 047
     Dates: start: 20230301, end: 20230301
  2. DORZOLAMIDE HYDROCHLORIDE\TIMOLOL MALEATE [Suspect]
     Active Substance: DORZOLAMIDE HYDROCHLORIDE\TIMOLOL MALEATE
     Indication: Glaucoma
     Route: 047

REACTIONS (4)
  - Ocular discomfort [Unknown]
  - Application site swelling [Not Recovered/Not Resolved]
  - Periorbital swelling [Not Recovered/Not Resolved]
  - Inappropriate schedule of product administration [Unknown]

NARRATIVE: CASE EVENT DATE: 20230301
